FAERS Safety Report 10078836 (Version 1)
Quarter: 2014Q2

REPORT INFORMATION
  Report Type: Spontaneous
  Country: US (occurrence: None)
  Receive Date: 20140414
  Receipt Date: 20140414
  Transmission Date: 20141212
  Serious: Yes (Hospitalization)
  Sender: FDA-Public Use
  Company Number: None

PATIENT
  Age: 2 Year
  Sex: Female
  Weight: 12.6 kg

DRUGS (1)
  1. CISPLATIN [Suspect]

REACTIONS (7)
  - Malaise [None]
  - Hypotension [None]
  - Pyrexia [None]
  - Tachycardia [None]
  - Sepsis [None]
  - Enterobacter test positive [None]
  - Hyponatraemic seizure [None]
